FAERS Safety Report 6037160-5 (Version None)
Quarter: 2009Q1

REPORT INFORMATION
  Report Type: 
  Country: None (occurrence: None)
  Receive Date: 20090114
  Receipt Date: 20090112
  Transmission Date: 20090719
  Serious: Yes (Other)
  Sender: FDA-Public Use
  Company Number: US-MERCK-0810USA05321

PATIENT
  Age: 77 Year
  Sex: Male
  Weight: 89 kg

DRUGS (4)
  1. VYTORIN [Suspect]
     Indication: DYSLIPIDAEMIA
     Route: 048
     Dates: start: 20060625, end: 20070501
  2. VYTORIN [Suspect]
     Route: 048
     Dates: end: 20081208
  3. FLOMAX (MORNIFLUMATE) [Concomitant]
     Route: 065
  4. AUDES [Concomitant]
     Indication: PROSTATIC SPECIFIC ANTIGEN ABNORMAL
     Route: 065
     Dates: start: 20080729

REACTIONS (4)
  - ARTHRALGIA [None]
  - MOVEMENT DISORDER [None]
  - MUSCULAR WEAKNESS [None]
  - MYALGIA [None]
